FAERS Safety Report 9516850 (Version 2)
Quarter: 2013Q4

REPORT INFORMATION
  Report Type: Spontaneous
  Country: US (occurrence: US)
  Receive Date: 20130911
  Receipt Date: 20131023
  Transmission Date: 20140711
  Serious: No
  Sender: FDA-Public Use
  Company Number: US-PFIZER INC-2013254453

PATIENT
  Age: 59 Year
  Sex: Female
  Weight: 78.01 kg

DRUGS (7)
  1. XELJANZ [Suspect]
     Indication: RHEUMATOID ARTHRITIS
     Dosage: 5 MG, 2X/DAY
     Route: 048
  2. METHOTREXATE [Concomitant]
     Dosage: 2.5 MG, UNK
  3. PREDNISONE [Concomitant]
     Dosage: 1 MG, UNK
  4. VITAMIN B3 (NICOTINIC ACID AMIDE) [Concomitant]
     Dosage: 100 MG, UNK
  5. LORATADINE [Concomitant]
     Dosage: 10 MG, UNK
  6. FLUTICASONE [Concomitant]
     Dosage: 50 UG, UNK
  7. FISH OIL [Concomitant]
     Dosage: UNK

REACTIONS (6)
  - Pain [Unknown]
  - Musculoskeletal stiffness [Unknown]
  - Local swelling [Unknown]
  - Joint swelling [Unknown]
  - Blood pressure increased [Unknown]
  - Drug ineffective [Unknown]
